FAERS Safety Report 4600225-6 (Version None)
Quarter: 2005Q1

REPORT INFORMATION
  Report Type: 
  Country: None (occurrence: None)
  Receive Date: 20050303
  Receipt Date: 20050228
  Transmission Date: 20050727
  Serious: Yes (Life-Threatening)
  Sender: FDA-Public Use
  Company Number: 200510095BYL

PATIENT
  Sex: Female

DRUGS (4)
  1. CIPROXAN [Suspect]
     Dosage: 300 MG, TOTAL DAILY
     Route: 043
  2. TARGOCID [Concomitant]
  3. SIGMART [Concomitant]
  4. FLUID INFUSION [Concomitant]

REACTIONS (2)
  - CARDIAC FAILURE [None]
  - HYPOGLYCAEMIA [None]
